FAERS Safety Report 21762078 (Version 5)
Quarter: 2023Q2

REPORT INFORMATION
  Report Type: Other
  Country: US (occurrence: US)
  Receive Date: 20221221
  Receipt Date: 20230403
  Transmission Date: 20230722
  Serious: Yes (Hospitalization, Other)
  Sender: FDA-Public Use
  Company Number: US-NEUROCRINE BIOSCIENCES INC.-2022NBI09260

PATIENT

DRUGS (3)
  1. ONGENTYS [Suspect]
     Active Substance: OPICAPONE
     Indication: Parkinson^s disease
     Dosage: 25 MILLIGRAM, QD
     Route: 048
     Dates: start: 20230221
  2. ONGENTYS [Suspect]
     Active Substance: OPICAPONE
     Dosage: 50 MILLIGRAM,QD
     Route: 048
     Dates: start: 20221215
  3. CARBIDOPA\LEVODOPA [Concomitant]
     Active Substance: CARBIDOPA\LEVODOPA
     Indication: Parkinson^s disease
     Dosage: UNKNOWN
     Route: 065

REACTIONS (10)
  - Loss of consciousness [Recovered/Resolved]
  - Fall [Recovered/Resolved]
  - Heart rate decreased [Recovered/Resolved]
  - Hypotension [Recovered/Resolved]
  - Syncope [Recovered/Resolved]
  - Dizziness [Recovered/Resolved]
  - Hallucination, visual [Recovered/Resolved]
  - Head injury [Not Recovered/Not Resolved]
  - Malaise [Not Recovered/Not Resolved]
  - Underdose [Unknown]

NARRATIVE: CASE EVENT DATE: 20221124
